FAERS Safety Report 8212431-2 (Version None)
Quarter: 2012Q1

REPORT INFORMATION
  Report Type: 
  Country: None (occurrence: None)
  Receive Date: 20120315
  Receipt Date: 20120308
  Transmission Date: 20120608
  Serious: Yes (Hospitalization)
  Sender: FDA-Public Use
  Company Number: US-BAYER-2011-018322

PATIENT
  Age: 37 Year
  Sex: Female
  Weight: 55.782 kg

DRUGS (4)
  1. YASMIN [Suspect]
     Indication: CONTRACEPTION
     Dosage: UNK
     Route: 048
     Dates: start: 20030322, end: 20040704
  2. YASMIN [Suspect]
     Indication: PREMENSTRUAL SYNDROME
  3. NORTRIPTYLINE HCL [Concomitant]
  4. VICODIN [Concomitant]
     Dosage: UNK UNK, PRN

REACTIONS (3)
  - PAIN [None]
  - PULMONARY EMBOLISM [None]
  - INJURY [None]
